FAERS Safety Report 19964137 (Version 2)
Quarter: 2021Q4

REPORT INFORMATION
  Report Type: Other
  Country: DE (occurrence: DE)
  Receive Date: 20211018
  Receipt Date: 20211110
  Transmission Date: 20220303
  Serious: Yes (Congenital Anomaly, Other)
  Sender: FDA-Public Use
  Company Number: DE-EMBRYOTOX-202102906

PATIENT
  Age: 1 Day
  Sex: Female
  Weight: 3.34 kg

DRUGS (3)
  1. EMTRICITABINE\TENOFOVIR DISOPROXIL [Suspect]
     Active Substance: EMTRICITABINE\TENOFOVIR DISOPROXIL
     Indication: HIV infection
     Dosage: 200 MILLIGRAM, QD-TABLET
     Route: 064
     Dates: start: 20200415, end: 20210120
  2. KALETRA [Suspect]
     Active Substance: LOPINAVIR\RITONAVIR
     Indication: HIV infection
     Dosage: 100 MILLIGRAM, BID (100-0-100)
     Route: 064
     Dates: start: 20200415, end: 20210120
  3. KALETRA [Suspect]
     Active Substance: LOPINAVIR\RITONAVIR
     Dosage: 400 MILLIGRAM, BID (400-0-400), 2 SEPARATED DOSES
     Route: 064
     Dates: start: 20200415, end: 20210120

REACTIONS (2)
  - Brachydactyly [Not Recovered/Not Resolved]
  - Foetal exposure during pregnancy [Unknown]

NARRATIVE: CASE EVENT DATE: 20210120
